FAERS Safety Report 26148449 (Version 1)
Quarter: 2025Q4

REPORT INFORMATION
  Report Type: Report from Study
  Country: CA (occurrence: CA)
  Receive Date: 20251212
  Receipt Date: 20251212
  Transmission Date: 20260117
  Serious: No
  Sender: BIOGEN
  Company Number: CA-BIOGEN-2094158

PATIENT
  Age: 32 Year
  Sex: Female

DRUGS (2)
  1. TYSABRI [Suspect]
     Active Substance: NATALIZUMAB
     Indication: Multiple sclerosis
     Dates: start: 20220328, end: 20240624
  2. TYSABRI [Suspect]
     Active Substance: NATALIZUMAB
     Dates: start: 20241115

REACTIONS (2)
  - Prescribed underdose [Not Recovered/Not Resolved]
  - Hypersensitivity [Unknown]

NARRATIVE: CASE EVENT DATE: 20241115
